FAERS Safety Report 6930214-8 (Version None)
Quarter: 2010Q3

REPORT INFORMATION
  Report Type: 
  Country: None (occurrence: None)
  Receive Date: 20100813
  Receipt Date: 20100729
  Transmission Date: 20110219
  Serious: Yes (Hospitalization)
  Sender: FDA-Public Use
  Company Number: 7012921

PATIENT
  Age: 54 Year
  Sex: Male

DRUGS (6)
  1. REBIF [Suspect]
     Indication: RELAPSING-REMITTING MULTIPLE SCLEROSIS
     Dosage: 22 MCG, 3 IN 1 WK, SUBCUTANEOUS; 44 MCG, 3 IN 1 WK, SUBCUTANEOUS
     Route: 058
     Dates: start: 20040701, end: 20100501
  2. REBIF [Suspect]
     Indication: RELAPSING-REMITTING MULTIPLE SCLEROSIS
     Dosage: 22 MCG, 3 IN 1 WK, SUBCUTANEOUS; 44 MCG, 3 IN 1 WK, SUBCUTANEOUS
     Route: 058
     Dates: start: 20100501
  3. PAMELOR (NORTRIPTYLINE) (NORTRIPTYLINE HYDROCHLORIDE) [Concomitant]
  4. TEGRETOL (CARBAMAZOLE) [Concomitant]
  5. OMEPRAZOLE [Concomitant]
  6. HYDROCHLOROTHIAZIDE [Concomitant]

REACTIONS (2)
  - FEELING COLD [None]
  - SENSORY LOSS [None]
